FAERS Safety Report 8093764-X (Version None)
Quarter: 2012Q1

REPORT INFORMATION
  Report Type: 
  Country: None (occurrence: None)
  Receive Date: 20120129
  Receipt Date: 20111003
  Transmission Date: 20120608
  Serious: No
  Sender: FDA-Public Use
  Company Number: US-ABBOTT-11P-163-0859976-00

PATIENT
  Sex: Female
  Weight: 69.916 kg

DRUGS (1)
  1. HUMIRA [Suspect]
     Indication: CROHN'S DISEASE
     Dates: start: 20110915

REACTIONS (3)
  - SKIN IRRITATION [None]
  - INJECTION SITE RASH [None]
  - RASH ERYTHEMATOUS [None]
